FAERS Safety Report 6220127-1 (Version None)
Quarter: 2009Q2

REPORT INFORMATION
  Report Type: 
  Country: None (occurrence: None)
  Receive Date: 20090609
  Receipt Date: 20090422
  Transmission Date: 20091009
  Serious: No
  Sender: FDA-Public Use
  Company Number: US-TYCO HEALTHCARE/MALLINCKRODT-T200900921

PATIENT
  Age: 41 Year
  Sex: Female

DRUGS (9)
  1. OCTREOSCAN [Suspect]
     Indication: SOMATOSTATIN RECEPTOR SCAN
     Dosage: 6.5 MCI, SINGLE
     Route: 042
     Dates: start: 20090421, end: 20090421
  2. SYNTHROID [Concomitant]
     Indication: THYROID DISORDER
     Dosage: UNK
  3. COREG [Concomitant]
     Indication: HYPERTENSION
     Dosage: UNK
  4. PRILOSEC [Concomitant]
     Indication: HELICOBACTER GASTRITIS
     Dosage: UNK
  5. PYLERICA [Concomitant]
     Indication: HELICOBACTER GASTRITIS
     Dosage: UNK
  6. XYZAL [Concomitant]
     Dosage: UNK
  7. TOPAMAX [Concomitant]
     Indication: MIGRAINE
     Dosage: UNK
  8. SINGULAIR [Concomitant]
     Indication: ASTHMA
     Dosage: UNK
  9. MULTI-VITAMINS [Concomitant]
     Indication: SUPPLEMENTATION THERAPY
     Dosage: UNK

REACTIONS (7)
  - ABDOMINAL PAIN [None]
  - ASTHENIA [None]
  - DIARRHOEA [None]
  - FLATULENCE [None]
  - HYPERHIDROSIS [None]
  - NAUSEA [None]
  - PYREXIA [None]
